FAERS Safety Report 9655992 (Version 4)
Quarter: 2014Q2

REPORT INFORMATION
  Report Type: Spontaneous
  Country: ES (occurrence: ES)
  Receive Date: 20131030
  Receipt Date: 20140416
  Transmission Date: 20141212
  Serious: Yes (Hospitalization, Other)
  Sender: FDA-Public Use
  Company Number: ES-AMGEN-ESPSP2013075843

PATIENT
  Age: 58 Year
  Sex: Female

DRUGS (2)
  1. PROLIA [Suspect]
     Indication: OSTEOPOROSIS
     Dosage: UNK
     Route: 065
     Dates: start: 201301
  2. NATECAL D [Concomitant]

REACTIONS (23)
  - Immunodeficiency [Unknown]
  - Pneumonia necrotising [Not Recovered/Not Resolved]
  - Renal failure acute [Not Recovered/Not Resolved]
  - Bronchial hyperreactivity [Unknown]
  - Respiratory failure [Unknown]
  - Latent tuberculosis [Unknown]
  - Sinus tachycardia [Unknown]
  - Dyspnoea [Unknown]
  - Cough [Unknown]
  - Haemoptysis [Unknown]
  - Vomiting [Unknown]
  - Respiratory tract infection [Unknown]
  - Herpes zoster [Not Recovered/Not Resolved]
  - Bacterial infection [Unknown]
  - Odynophagia [Unknown]
  - Temperature regulation disorder [Unknown]
  - Asthenia [Unknown]
  - Decreased appetite [Unknown]
  - Pleuritic pain [Unknown]
  - Tuberculin test positive [Not Recovered/Not Resolved]
  - Normochromic normocytic anaemia [Unknown]
  - Hypertension [Unknown]
  - Musculoskeletal pain [Unknown]
